FAERS Safety Report 7463207-5 (Version None)
Quarter: 2011Q2

REPORT INFORMATION
  Report Type: 
  Country: None (occurrence: None)
  Receive Date: 20110506
  Receipt Date: 20110422
  Transmission Date: 20111010
  Serious: Yes (Hospitalization)
  Sender: FDA-Public Use
  Company Number: JP-JNJFOC-20110401321

PATIENT
  Sex: Female

DRUGS (16)
  1. REMICADE [Suspect]
     Route: 042
  2. REMICADE [Suspect]
     Indication: CROHN'S DISEASE
     Dosage: 11TH INFUSION
     Route: 042
  3. PREDNISOLONE [Concomitant]
     Indication: PREMEDICATION
  4. VALPROATE SODIUM [Concomitant]
     Indication: CROHN'S DISEASE
     Route: 048
  5. MESALAMINE [Concomitant]
  6. REMICADE [Suspect]
     Route: 042
  7. LANSOPRAZOLE [Concomitant]
     Indication: CROHN'S DISEASE
     Dosage: 15 DF  TOTAL DAILY DOSE 15 DF
     Route: 048
  8. REMICADE [Suspect]
     Dosage: TOTAL 11 INFUSIONS
     Route: 042
  9. GASMOTIN [Concomitant]
     Indication: CROHN'S DISEASE
     Dosage: 5  DF  TOTAL DAILY DOSE 15 DF
     Route: 048
  10. REMICADE [Suspect]
     Route: 042
  11. CLOSTRIDIUM BUTYRICUM [Concomitant]
     Indication: CROHN'S DISEASE
     Route: 048
  12. ALBUMIN TANNATE [Concomitant]
     Indication: CROHN'S DISEASE
     Route: 048
  13. PREDNISOLONE [Concomitant]
  14. MESALAZINE [Concomitant]
     Indication: CROHN'S DISEASE
     Dosage: 750 DF  TOTAL DAILY DOSE 750 DF
     Route: 048
  15. LAC B [Concomitant]
     Indication: CROHN'S DISEASE
     Route: 048
  16. BROTIZOLAM [Concomitant]
     Indication: CROHN'S DISEASE
     Dosage: 0.25 DF  TOTAL DAILY DOSE 0.25 DF
     Route: 048

REACTIONS (9)
  - PNEUMONIA ASPIRATION [None]
  - DEVICE RELATED INFECTION [None]
  - PYELONEPHRITIS ACUTE [None]
  - INFUSION RELATED REACTION [None]
  - AORTIC VALVE INCOMPETENCE [None]
  - CANDIDA ENDOPHTHALMITIS [None]
  - ENDOCARDITIS [None]
  - ANAPHYLACTIC SHOCK [None]
  - CLOSTRIDIUM DIFFICILE COLITIS [None]
